FAERS Safety Report 23984127 (Version 2)
Quarter: 2024Q3

REPORT INFORMATION
  Report Type: Report from Study
  Country: US (occurrence: US)
  Receive Date: 20240618
  Receipt Date: 20240926
  Transmission Date: 20241016
  Serious: Yes (Other)
  Sender: SANDOZ
  Company Number: US-SANDOZ-SDZ2024US052251

PATIENT
  Age: 71 Year
  Sex: Male

DRUGS (2)
  1. GLATOPA [Suspect]
     Active Substance: GLATIRAMER ACETATE
     Indication: Multiple sclerosis
     Dosage: 3 X WEEK, MONDAY, WEDNESDAY, FRIDAY
     Route: 058
     Dates: start: 20240524
  2. GLATOPA [Suspect]
     Active Substance: GLATIRAMER ACETATE
     Dosage: 3X WEEK, M-W-F
     Route: 058
     Dates: start: 20240523

REACTIONS (8)
  - Neuropathy peripheral [Unknown]
  - Headache [Unknown]
  - Malaise [Unknown]
  - Chills [Unknown]
  - Injection site pain [Unknown]
  - Wrong technique in product usage process [Unknown]
  - Drug administered in wrong device [Unknown]
  - Device mechanical issue [Unknown]

NARRATIVE: CASE EVENT DATE: 20240524
